FAERS Safety Report 9840859 (Version 1)
Quarter: 2013Q4

REPORT INFORMATION
  Report Type: Spontaneous
  Country: US (occurrence: None)
  Receive Date: 20131223
  Receipt Date: 20131223
  Transmission Date: 20140711
  Serious: Yes (Other)
  Sender: FDA-Public Use
  Company Number: 219416LEO

PATIENT
  Age: 66 Year
  Sex: Female

DRUGS (3)
  1. PICATO [Suspect]
     Indication: ACTINIC KERATOSIS
     Route: 061
     Dates: start: 20121028, end: 20121029
  2. SIMVASTATIN [Suspect]
  3. NAPROXEN [Suspect]

REACTIONS (5)
  - Lacrimation increased [None]
  - Eye irritation [None]
  - Application site erythema [None]
  - Application site discolouration [None]
  - Accidental exposure to product [None]
